FAERS Safety Report 4461611-0 (Version None)
Quarter: 2004Q3

REPORT INFORMATION
  Report Type: 
  Country: None (occurrence: None)
  Receive Date: 20040924
  Receipt Date: 20040924
  Transmission Date: 20050211
  Serious: Yes (Life-Threatening, Hospitalization)
  Sender: FDA-Public Use
  Company Number: None

PATIENT
  Age: 51 Year
  Sex: Male
  Weight: 87.2 kg

DRUGS (3)
  1. SUMATRIPTAN [Suspect]
     Indication: MIGRAINE
     Dosage: 20MG, 1 SPRAY, NASAL
     Route: 045
     Dates: start: 19990422, end: 20040817
  2. PERCOCET [Concomitant]
  3. LORATADINE [Concomitant]

REACTIONS (1)
  - MYOCARDIAL INFARCTION [None]
